FAERS Safety Report 16054756 (Version 2)
Quarter: 2022Q1

REPORT INFORMATION
  Report Type: Spontaneous
  Country: US (occurrence: US)
  Receive Date: 20190309
  Receipt Date: 20220201
  Transmission Date: 20220424
  Serious: Yes (Hospitalization, Other)
  Sender: FDA-Public Use
  Company Number: PHEH2019US009359

PATIENT
  Sex: Female

DRUGS (1)
  1. TASIGNA [Suspect]
     Active Substance: NILOTINIB
     Indication: Chronic myeloid leukaemia
     Dosage: 2 DF, BID
     Route: 048
     Dates: start: 20131218, end: 201603

REACTIONS (19)
  - Hypogammaglobulinaemia [Unknown]
  - Hypophosphataemia [Unknown]
  - Abdominal pain [Unknown]
  - Constipation [Unknown]
  - Muscle spasms [Unknown]
  - Cholecystitis chronic [Unknown]
  - Mitral valve stenosis [Unknown]
  - Pancreatitis [Unknown]
  - Pericardial effusion [Unknown]
  - Arteriosclerosis coronary artery [Unknown]
  - Sinusitis [Unknown]
  - Chest pain [Unknown]
  - Palpitations [Unknown]
  - Injury [Unknown]
  - Vascular stenosis [Unknown]
  - Arteriosclerosis [Unknown]
  - Pain [Unknown]
  - Anxiety [Unknown]
  - Emotional distress [Unknown]
